FAERS Safety Report 14213086 (Version 2)
Quarter: 2018Q2

REPORT INFORMATION
  Report Type: Spontaneous
  Country: FR (occurrence: FR)
  Receive Date: 20171122
  Receipt Date: 20180523
  Transmission Date: 20180711
  Serious: Yes (Other)
  Sender: FDA-Public Use
  Company Number: FR-MERCK KGAA-2034841

PATIENT
  Age: 46 Year
  Sex: Female
  Weight: 88 kg

DRUGS (3)
  1. LEVOTHYROX 150 NF [Suspect]
     Active Substance: LEVOTHYROXINE SODIUM
     Route: 048
  2. LEVOTHYROX 150 NF [Suspect]
     Active Substance: LEVOTHYROXINE SODIUM
     Route: 048
  3. NOVOTHYROX [Suspect]
     Active Substance: LEVOTHYROXINE SODIUM
     Indication: HYPOTHYROIDISM
     Route: 048
     Dates: start: 20170331, end: 20171010

REACTIONS (20)
  - Dizziness [Not Recovered/Not Resolved]
  - Arthralgia [None]
  - Libido decreased [None]
  - Weight increased [None]
  - Depression [None]
  - Apathy [None]
  - Mood altered [None]
  - Insomnia [None]
  - Blood thyroid stimulating hormone increased [Not Recovered/Not Resolved]
  - Affective disorder [Not Recovered/Not Resolved]
  - Headache [Not Recovered/Not Resolved]
  - Red blood cell sedimentation rate increased [None]
  - Personal relationship issue [None]
  - Sleep disorder [None]
  - Serum ferritin decreased [None]
  - Asthenia [None]
  - Social avoidant behaviour [None]
  - Nausea [Not Recovered/Not Resolved]
  - Decreased activity [None]
  - Fatigue [Not Recovered/Not Resolved]

NARRATIVE: CASE EVENT DATE: 20170401
